FAERS Safety Report 4349732-4 (Version None)
Quarter: 2004Q2

REPORT INFORMATION
  Report Type: 
  Country: None (occurrence: None)
  Receive Date: 20040428
  Receipt Date: 20040413
  Transmission Date: 20050107
  Serious: No
  Sender: FDA-Public Use
  Company Number: 02100-JPN-04-0103

PATIENT
  Age: 59 Year
  Sex: Female

DRUGS (2)
  1. CILOSTAZOL [Suspect]
     Dosage: 200 MG
     Route: 048
     Dates: start: 20040327, end: 20040402
  2. SULTAMICILLIN TOSILATE [Suspect]
     Dosage: 1125 MG
     Route: 048
     Dates: start: 20040327, end: 20040402

REACTIONS (3)
  - EOSINOPHIL COUNT INCREASED [None]
  - PLATELET COUNT DECREASED [None]
  - WHITE BLOOD CELL COUNT DECREASED [None]
